FAERS Safety Report 8515156-9 (Version None)
Quarter: 2012Q3

REPORT INFORMATION
  Report Type: 
  Country: None (occurrence: None)
  Receive Date: 20120717
  Receipt Date: 20120709
  Transmission Date: 20120928
  Serious: Yes (Other)
  Sender: FDA-Public Use
  Company Number: US-GLAXOSMITHKLINE-A0956331A

PATIENT
  Age: 56 Year
  Sex: Female
  Weight: 77 kg

DRUGS (9)
  1. DILTIAZEM [Concomitant]
  2. TYKERB [Suspect]
     Indication: METASTASES TO PLEURA
     Dosage: 1000MG PER DAY
     Route: 048
     Dates: start: 20110816
  3. LETROZOLE [Concomitant]
  4. ZOFRAN [Concomitant]
  5. IMODIUM [Concomitant]
  6. XELODA [Concomitant]
  7. XANAX [Concomitant]
  8. POTASSIUM CHLORIDE [Concomitant]
  9. TEMAZEPAM [Concomitant]

REACTIONS (13)
  - CHEST DISCOMFORT [None]
  - OSTEOARTHRITIS [None]
  - SPONDYLOLISTHESIS [None]
  - METASTATIC NEOPLASM [None]
  - DIARRHOEA [None]
  - CONSTIPATION [None]
  - COLON NEOPLASM [None]
  - CEREBRAL ISCHAEMIA [None]
  - RASH VESICULAR [None]
  - ADVERSE EVENT [None]
  - VITREOUS FLOATERS [None]
  - ENTHESOPATHY [None]
  - HEPATIC CYST [None]
